FAERS Safety Report 6296889-4 (Version None)
Quarter: 2009Q3

REPORT INFORMATION
  Report Type: 
  Country: None (occurrence: None)
  Receive Date: 20090804
  Receipt Date: 20090709
  Transmission Date: 20100115
  Serious: Yes (Other)
  Sender: FDA-Public Use
  Company Number: PHHY2009BR28317

PATIENT
  Sex: Female
  Weight: 87 kg

DRUGS (1)
  1. EXELON [Suspect]
     Indication: MEMORY IMPAIRMENT
     Dosage: 9MG/5CM2, 1 PATCH DAILY
     Route: 062
     Dates: start: 20090401

REACTIONS (2)
  - APPLICATION SITE DISCOLOURATION [None]
  - APPLICATION SITE EROSION [None]
